FAERS Safety Report 4577837-1 (Version None)
Quarter: 2005Q1

REPORT INFORMATION
  Report Type: 
  Country: None (occurrence: None)
  Receive Date: 20050209
  Receipt Date: 20050125
  Transmission Date: 20050727
  Serious: Yes (Other)
  Sender: FDA-Public Use
  Company Number: 2005-NL-00012NL

PATIENT
  Age: 44 Year
  Sex: Female

DRUGS (5)
  1. MOVICOX (MELOXICAM) (TA) [Suspect]
     Dosage: 15 MG (15 MG, 1 IN 1 D)
     Dates: start: 20010305, end: 20010320
  2. MULTILOAD-CU 250 STANDARD I.U.D. (INTRAUTERINE CONTRACEPTIVE DEVICE) [Suspect]
  3. REMERON (MIRTAZAPINE) (TA) [Concomitant]
  4. OXAZEPAMUM (OXAZEPAM) (TA) [Concomitant]
  5. BRICANYL RETARD (TERBUTALINE SULFATE) (TA) [Concomitant]

REACTIONS (2)
  - DRUG EXPOSURE DURING PREGNANCY [None]
  - PREGNANCY WITH CONTRACEPTIVE DEVICE [None]
